FAERS Safety Report 13563625 (Version 1)
Quarter: 2017Q2

REPORT INFORMATION
  Report Type: Spontaneous
  Country: US (occurrence: US)
  Receive Date: 20170519
  Receipt Date: 20170519
  Transmission Date: 20170830
  Serious: Yes (Other)
  Sender: FDA-Public Use
  Company Number: US-PFIZER INC-2017217219

PATIENT
  Age: 21 Year
  Sex: Male

DRUGS (6)
  1. MORPHINE [Concomitant]
     Active Substance: MORPHINE
     Indication: PAIN
     Dosage: 30 MG, 2X/DAY (EXTENDED RELEASE)
  2. AMIODARONE [Concomitant]
     Active Substance: AMIODARONE
     Dosage: 400 MG, 2X/DAY
  3. ACETAMINOPHEN W/OXYCODONE HYDROCHLORIDE [Concomitant]
     Indication: PAIN
     Dosage: UNK (325MG-5MG 1-2 TABLETS AS NEEDED EVERY 4 H)
  4. GABAPENTIN. [Concomitant]
     Active Substance: GABAPENTIN
     Indication: NEURALGIA
     Dosage: 300 MG, 3X/DAY
  5. METOPROLOL. [Concomitant]
     Active Substance: METOPROLOL
     Dosage: 12.5 MG, 2X/DAY
  6. KETAMINE HCL [Suspect]
     Active Substance: KETAMINE HYDROCHLORIDE
     Indication: DRUG USE DISORDER
     Dosage: 10 MG/H

REACTIONS (1)
  - Electrocardiogram QT prolonged [Recovered/Resolved]
